FAERS Safety Report 9530663 (Version 1)
Quarter: 2013Q3

REPORT INFORMATION
  Report Type: Spontaneous
  Country: US (occurrence: US)
  Receive Date: 20130918
  Receipt Date: 20130918
  Transmission Date: 20140515
  Serious: No
  Sender: FDA-Public Use
  Company Number: US-009507513-1309USA006442

PATIENT
  Sex: Female

DRUGS (11)
  1. ZOSTAVAX [Suspect]
     Indication: PROPHYLAXIS
     Dates: start: 20120830, end: 20120830
  2. FOSAMAX [Suspect]
     Dosage: 70 MG, QW
     Route: 048
  3. XANAX [Concomitant]
  4. ATENOLOL [Concomitant]
  5. FLUOXETINE [Concomitant]
  6. SYNTHROID [Concomitant]
  7. PRAZOSIN [Concomitant]
  8. PRISTIQ [Concomitant]
  9. SEROQUEL [Concomitant]
  10. SIMVASTATIN TABLETS, USP [Concomitant]
     Route: 048
  11. TRAZODONE HYDROCHLORIDE [Concomitant]

REACTIONS (2)
  - Herpes zoster [Unknown]
  - Extra dose administered [Unknown]
